FAERS Safety Report 12911274 (Version 1)
Quarter: 2016Q4

REPORT INFORMATION
  Report Type: Spontaneous
  Country: US (occurrence: US)
  Receive Date: 20161102
  Receipt Date: 20161102
  Transmission Date: 20170207
  Serious: No
  Sender: FDA-Public Use
  Company Number: None

PATIENT
  Age: 46 Year
  Sex: Female
  Weight: 54 kg

DRUGS (2)
  1. TERBINAFINE TABLETS [Suspect]
     Active Substance: TERBINAFINE
     Indication: ONYCHOMYCOSIS
     Dosage: ?          QUANTITY:30 TABLET(S);?
     Route: 048
     Dates: start: 20160919, end: 20161014
  2. WOMAN^S ONCE A DAY VITAMIN [Concomitant]

REACTIONS (6)
  - Urticaria [None]
  - Abdominal pain [None]
  - Lip swelling [None]
  - Headache [None]
  - Eye swelling [None]
  - Pruritus generalised [None]

NARRATIVE: CASE EVENT DATE: 20161014
